FAERS Safety Report 5247548-8 (Version None)
Quarter: 2007Q1

REPORT INFORMATION
  Report Type: 
  Country: None (occurrence: None)
  Receive Date: 20070227
  Receipt Date: 20070215
  Transmission Date: 20070707
  Serious: Yes (Other)
  Sender: FDA-Public Use
  Company Number: PHHO2007GB03183

PATIENT
  Age: 66 Year
  Sex: Female

DRUGS (4)
  1. CLINDAMYCIN [Concomitant]
     Indication: BREAST CANCER METASTATIC
     Dosage: 2.5 MG, QD
     Route: 048
     Dates: start: 20051201, end: 20061207
  2. ANTHRACYCLINES [Concomitant]
  3. LETROZOLE [Suspect]
     Dates: start: 20051201, end: 20061007
  4. EXEMESTANE [Concomitant]

REACTIONS (3)
  - CARDIAC FAILURE [None]
  - DIABETIC FOOT INFECTION [None]
  - EJECTION FRACTION DECREASED [None]
